FAERS Safety Report 7999070-3 (Version None)
Quarter: 2011Q4

REPORT INFORMATION
  Report Type: 
  Country: None (occurrence: None)
  Receive Date: 20111221
  Receipt Date: 20111208
  Transmission Date: 20120403
  Serious: Yes (Hospitalization, Other)
  Sender: FDA-Public Use
  Company Number: BR-ROCHE-1023239

PATIENT
  Sex: Female

DRUGS (4)
  1. BUDESONIDE AND FORMOTEROL FUMARATE [Suspect]
     Indication: ASTHMA
     Dosage: 12/400 UG
  2. OMALIZUMAB [Suspect]
     Indication: ASTHMA
  3. FLUMIL (ACETYLCYSTEINE) [Concomitant]
  4. NASONEX [Concomitant]

REACTIONS (3)
  - WEIGHT INCREASED [None]
  - ASTHMA [None]
  - FATIGUE [None]
